APPROVED DRUG PRODUCT: VASOPRESSIN
Active Ingredient: VASOPRESSIN
Strength: 20UNITS/100ML (0.2UNITS/ML)
Dosage Form/Route: SOLUTION;INTRAVENOUS
Application: A217987 | Product #001 | TE Code: AP
Applicant: CIPLA LTD
Approved: Dec 6, 2023 | RLD: No | RS: No | Type: RX